FAERS Safety Report 9827764 (Version 1)
Quarter: 2013Q4

REPORT INFORMATION
  Report Type: Spontaneous
  Country: US (occurrence: None)
  Receive Date: 20131120
  Receipt Date: 20131120
  Transmission Date: 20140711
  Serious: No
  Sender: FDA-Public Use
  Company Number: 1000048015

PATIENT
  Sex: Male

DRUGS (1)
  1. VIIBRYD (VILAZODONE HYDROCHLORIDE) (TABLETS) [Suspect]
     Dosage: 40 MG (40 MG, 1 IN 1 D), ORAL
     Route: 048

REACTIONS (1)
  - Infertility [None]
